FAERS Safety Report 5109990-5 (Version None)
Quarter: 2006Q3

REPORT INFORMATION
  Report Type: 
  Country: None (occurrence: None)
  Receive Date: 20060731
  Receipt Date: 20060403
  Transmission Date: 20061208
  Serious: No
  Sender: FDA-Public Use
  Company Number: 2006PV011446

PATIENT
  Age: 52 Year
  Sex: Female
  Weight: 113.3993 kg

DRUGS (4)
  1. BYETTA [Suspect]
     Indication: DRUG USE FOR UNKNOWN INDICATION
     Dosage: 5MCG;BID;SC
     Route: 058
     Dates: start: 20060101
  2. AMARYL [Concomitant]
  3. AVANDIA [Concomitant]
  4. FORTAMET [Concomitant]

REACTIONS (1)
  - INJECTION SITE URTICARIA [None]
